FAERS Safety Report 10144928 (Version 1)
Quarter: 2014Q2

REPORT INFORMATION
  Report Type: Spontaneous
  Country: US (occurrence: US)
  Receive Date: 20140430
  Receipt Date: 20140430
  Transmission Date: 20141212
  Serious: No
  Sender: FDA-Public Use
  Company Number: US-SA-2014SA022156

PATIENT
  Sex: Female

DRUGS (14)
  1. DEMEROL [Suspect]
     Route: 065
  2. AMITRIPTYLINE [Concomitant]
  3. LYRICA [Concomitant]
  4. ZYPREXA [Concomitant]
  5. SEROQUEL [Concomitant]
  6. ACETYLSALICYLIC ACID [Concomitant]
  7. VITAMIN B12 [Concomitant]
  8. NEXIUM [Concomitant]
  9. VITAMIN D [Concomitant]
  10. HMG COA REDUCTASE INHIBITORS [Concomitant]
  11. IBANDRONIC ACID [Concomitant]
  12. VOLTAREN [Concomitant]
  13. LIDOCAINE [Concomitant]
  14. EXELON [Concomitant]

REACTIONS (1)
  - Drug hypersensitivity [Unknown]
